FAERS Safety Report 6643132-X (Version None)
Quarter: 2010Q1

REPORT INFORMATION
  Report Type: 
  Country: None (occurrence: None)
  Receive Date: 20100319
  Receipt Date: 20100309
  Transmission Date: 20100710
  Serious: Yes (Hospitalization, Other)
  Sender: FDA-Public Use
  Company Number: PHHY2010BE14939

PATIENT
  Sex: Female

DRUGS (2)
  1. GLEEVEC [Suspect]
     Dosage: 600 MG
  2. ANTIBIOTICS [Suspect]

REACTIONS (4)
  - GASTROINTESTINAL TUBE INSERTION [None]
  - HAEMATURIA [None]
  - PNEUMONIA [None]
  - URETHRAL DILATATION [None]
